FAERS Safety Report 15009824 (Version 2)
Quarter: 2018Q3

REPORT INFORMATION
  Report Type: Other
  Country: FR (occurrence: FR)
  Receive Date: 20180614
  Receipt Date: 20180730
  Transmission Date: 20181010
  Serious: Yes (Hospitalization, Other)
  Sender: FDA-Public Use
  Company Number: FR-MACLEODS PHARMACEUTICALS US LTD-MAC2018014265

PATIENT

DRUGS (10)
  1. LINEZOLID ARROW [Suspect]
     Active Substance: LINEZOLID
     Indication: FEBRILE BONE MARROW APLASIA
     Dosage: 600 MILLIGRAM, 12 HOUR
     Route: 042
     Dates: start: 20180503, end: 20180517
  2. PANTOPRAZOLE MYLAN [Suspect]
     Active Substance: PANTOPRAZOLE SODIUM
     Indication: ABDOMINAL PAIN UPPER
     Dosage: 20 MILLIGRAM, QD
     Route: 048
     Dates: start: 20180424, end: 20180519
  3. TRISENOX [Suspect]
     Active Substance: ARSENIC TRIOXIDE
     Indication: ACUTE MYELOID LEUKAEMIA
     Dosage: 12.75 MILLIGRAM, 1 CYCLE, J1 TO J5 / CURE
     Route: 042
     Dates: start: 20180411, end: 20180526
  4. AMLODIPINE BESYLATE. [Suspect]
     Active Substance: AMLODIPINE BESYLATE
     Indication: HYPERTENSION
     Dosage: 10 MILLIGRAM, QD
     Route: 048
     Dates: start: 20180509
  5. VESANOID [Suspect]
     Active Substance: TRETINOIN
     Indication: ACUTE MYELOID LEUKAEMIA
     Dosage: 90 MILLIGRAM, QD
     Route: 048
     Dates: start: 20180411
  6. CANCIDAS [Suspect]
     Active Substance: CASPOFUNGIN ACETATE
     Indication: FEBRILE BONE MARROW APLASIA
     Dosage: 70 MILLIGRAM, QD
     Route: 042
     Dates: start: 20180503
  7. CETRIZINE ARROW [Suspect]
     Active Substance: CETIRIZINE HYDROCHLORIDE
     Indication: URTICARIA
     Dosage: 10 MILLIGRAM, QD
     Route: 048
     Dates: start: 20180414, end: 20180423
  8. TAZOCILLINE [Suspect]
     Active Substance: PIPERACILLIN SODIUM\TAZOBACTAM SODIUM
     Indication: FEBRILE BONE MARROW APLASIA
     Dosage: 16 GRAM, QD
     Route: 042
     Dates: start: 20180413
  9. ZELITREX [Suspect]
     Active Substance: VALACYCLOVIR HYDROCHLORIDE
     Indication: ANTIVIRAL PROPHYLAXIS
     Dosage: 500 MILLIGRAM, QD
     Route: 048
     Dates: start: 20180411
  10. ALPRAZOLAM MYLAN [Suspect]
     Active Substance: ALPRAZOLAM
     Indication: ANXIETY
     Dosage: 0.75 MILLIGRAM, QD, TABLET BREACKABLE, SCORED TABLET
     Route: 048
     Dates: start: 20180512

REACTIONS (1)
  - Electrocardiogram QT prolonged [Recovered/Resolved]

NARRATIVE: CASE EVENT DATE: 20180515
